FAERS Safety Report 13035223 (Version 1)
Quarter: 2016Q4

REPORT INFORMATION
  Report Type: Spontaneous
  Country: US (occurrence: US)
  Receive Date: 20161216
  Receipt Date: 20161216
  Transmission Date: 20170207
  Serious: No
  Sender: FDA-Public Use
  Company Number: US-009507513-1611USA011114

PATIENT
  Age: 27 Year
  Sex: Female

DRUGS (2)
  1. FOLLISTIM [Suspect]
     Active Substance: FOLLITROPIN
     Indication: INFERTILITY
     Dosage: 150 IU, QD
     Route: 058
  2. FOLLISTIM [Suspect]
     Active Substance: FOLLITROPIN
     Dosage: 150 IU, QD
     Route: 058

REACTIONS (2)
  - Migraine with aura [Recovered/Resolved]
  - Migraine with aura [Unknown]
